FAERS Safety Report 4514743-2 (Version None)
Quarter: 2004Q4

REPORT INFORMATION
  Report Type: 
  Country: None (occurrence: None)
  Receive Date: 20041201
  Receipt Date: 20041119
  Transmission Date: 20050328
  Serious: Yes (Other)
  Sender: FDA-Public Use
  Company Number: US-JNJFOC-20041105210

PATIENT
  Sex: Female
  Weight: 56.7 kg

DRUGS (2)
  1. REMICADE [Suspect]
     Indication: RHEUMATOID ARTHRITIS
     Dosage: 3-4 YEARS
     Route: 042
  2. METHOTREXATE [Concomitant]

REACTIONS (3)
  - LUPUS-LIKE SYNDROME [None]
  - PRURITUS [None]
  - SKIN DISCOLOURATION [None]
